FAERS Safety Report 16728880 (Version 1)
Quarter: 2019Q3

REPORT INFORMATION
  Report Type: Spontaneous
  Country: US (occurrence: US)
  Receive Date: 20190822
  Receipt Date: 20190822
  Transmission Date: 20191005
  Serious: Yes (Other)
  Sender: FDA-Public Use
  Company Number: US-PFIZER INC-2019354652

PATIENT
  Sex: Female

DRUGS (2)
  1. NEURONTIN [Suspect]
     Active Substance: GABAPENTIN
     Dosage: UNK, 2X/DAY
  2. NEURONTIN [Suspect]
     Active Substance: GABAPENTIN
     Dosage: UNK, 4X/DAY

REACTIONS (6)
  - Suicidal ideation [Unknown]
  - Impulsive behaviour [Unknown]
  - Anger [Unknown]
  - Suicidal behaviour [Unknown]
  - Aggression [Unknown]
  - Intentional product use issue [Unknown]
